FAERS Safety Report 14150330 (Version 1)
Quarter: 2017Q4

REPORT INFORMATION
  Report Type: Spontaneous
  Country: SA (occurrence: SA)
  Receive Date: 20171101
  Receipt Date: 20171101
  Transmission Date: 20180321
  Serious: Yes (Hospitalization)
  Sender: FDA-Public Use
  Company Number: SA-FRESENIUS KABI-FK201709180

PATIENT
  Age: 4 Month
  Sex: Male

DRUGS (1)
  1. OCTREOTIDE INJECTION (MANUFACTURER UNKNOWN) [Suspect]
     Active Substance: OCTREOTIDE
     Indication: HYPOGLYCAEMIA
     Route: 065

REACTIONS (3)
  - Drug administered to patient of inappropriate age [Recovered/Resolved]
  - Product use in unapproved indication [Recovered/Resolved]
  - Necrotising colitis [Recovered/Resolved]
